FAERS Safety Report 13940245 (Version 4)
Quarter: 2017Q3

REPORT INFORMATION
  Report Type: Spontaneous
  Country: JP (occurrence: JP)
  Receive Date: 20170906
  Receipt Date: 20170920
  Transmission Date: 20171127
  Serious: Yes (Hospitalization, Other)
  Sender: FDA-Public Use
  Company Number: PHJP2017JP027186

PATIENT
  Age: 69 Year
  Sex: Male

DRUGS (2)
  1. NEORAL [Suspect]
     Active Substance: CYCLOSPORINE
     Indication: PSORIASIS
     Dosage: 50 MG, QD
     Route: 048
  2. PILSICAINIDE [Suspect]
     Active Substance: PILSICAINIDE
     Indication: ARRHYTHMIA
     Dosage: UNK, PRN
     Route: 048

REACTIONS (8)
  - Tachycardia [Unknown]
  - Palpitations [Unknown]
  - Dizziness [Recovering/Resolving]
  - Atrial flutter [Unknown]
  - Atrial fibrillation [Unknown]
  - Immunosuppressant drug level increased [Unknown]
  - Immunosuppressant drug level decreased [Unknown]
  - Acute kidney injury [Recovering/Resolving]
